FAERS Safety Report 11050576 (Version 1)
Quarter: 2015Q2

REPORT INFORMATION
  Report Type: Spontaneous
  Country: US (occurrence: None)
  Receive Date: 20150420
  Receipt Date: 20150420
  Transmission Date: 20150821
  Serious: No
  Sender: FDA-Public Use
  Company Number: None

PATIENT
  Age: 57 Year

DRUGS (4)
  1. ALENDRONATE [Suspect]
     Active Substance: ALENDRONATE SODIUM
     Indication: WRIST FRACTURE
     Dosage: ONE, WEEKLY, TAKEN BY MOUTH
     Route: 048
     Dates: start: 20150329, end: 20150405
  2. GLUCOSAMINE CHONDROITIN [Concomitant]
     Active Substance: CHONDROITIN SULFATE (BOVINE)\GLUCOSAMINE HYDROCHLORIDE
  3. ALENDRONATE [Suspect]
     Active Substance: ALENDRONATE SODIUM
     Indication: OSTEOPENIA
     Dosage: ONE, WEEKLY, TAKEN BY MOUTH
     Route: 048
     Dates: start: 20150329, end: 20150405
  4. CALCIUM [Concomitant]
     Active Substance: CALCIUM

REACTIONS (5)
  - Pain [None]
  - Neck pain [None]
  - Feeling abnormal [None]
  - Musculoskeletal disorder [None]
  - Temporomandibular joint syndrome [None]

NARRATIVE: CASE EVENT DATE: 20150405
